FAERS Safety Report 23632666 (Version 1)
Quarter: 2024Q1

REPORT INFORMATION
  Report Type: Spontaneous
  Country: US (occurrence: US)
  Receive Date: 20240314
  Receipt Date: 20240314
  Transmission Date: 20240409
  Serious: No
  Sender: FDA-Public Use
  Company Number: ENDB23-04203

PATIENT
  Age: 64 Year
  Sex: Male

DRUGS (13)
  1. XIAFLEX [Suspect]
     Active Substance: COLLAGENASE CLOSTRIDIUM HISTOLYTICUM
     Indication: Dupuytren^s contracture
     Dosage: UNK UNKNOWN, UNKNOWN (ONE BOTTLE RIGHT MIDDLE RING AND SMALL FINGER SPIRAL CORD AND ONE BOTTLE LEFT
     Route: 051
     Dates: start: 201610
  2. XIAFLEX [Suspect]
     Active Substance: COLLAGENASE CLOSTRIDIUM HISTOLYTICUM
     Dosage: UNK UNKNOWN, UNKNOWN (ONE BOTTLE RMRS)
     Route: 051
     Dates: start: 201701
  3. XIAFLEX [Suspect]
     Active Substance: COLLAGENASE CLOSTRIDIUM HISTOLYTICUM
     Dosage: UNK UNKNOWN, UNKNOWN (TWO BOTTLES RMRS)
     Route: 051
     Dates: start: 201801
  4. XIAFLEX [Suspect]
     Active Substance: COLLAGENASE CLOSTRIDIUM HISTOLYTICUM
     Dosage: UNK UNKNOWN, UNKNOWN (ONE BOTTLE RIGHT SMALL FINGER)
     Route: 051
     Dates: start: 201802
  5. XIAFLEX [Suspect]
     Active Substance: COLLAGENASE CLOSTRIDIUM HISTOLYTICUM
     Dosage: UNK UNKNOWN, UNKNOWN (TWO BOTTLES LRS)
     Route: 051
     Dates: start: 201811
  6. XIAFLEX [Suspect]
     Active Substance: COLLAGENASE CLOSTRIDIUM HISTOLYTICUM
     Dosage: UNK UNKNOWN, UNKNOWN (ONE BOTTLE LRS TWO WEEKS LATER)
     Route: 051
     Dates: start: 2018
  7. XIAFLEX [Suspect]
     Active Substance: COLLAGENASE CLOSTRIDIUM HISTOLYTICUM
     Dosage: UNK UNKNOWN, UNKNOWN (TWO BOTTLES LEFT MIDDLE RING AND SMALL FINGER SPIRAL CORD)
     Route: 051
     Dates: start: 201909
  8. XIAFLEX [Suspect]
     Active Substance: COLLAGENASE CLOSTRIDIUM HISTOLYTICUM
     Dosage: UNK UNKNOWN, UNKNOWN (ONE BOTTLE RS)
     Route: 051
     Dates: start: 201910
  9. XIAFLEX [Suspect]
     Active Substance: COLLAGENASE CLOSTRIDIUM HISTOLYTICUM
     Dosage: UNK UNKNOWN, UNKNOWN (ONE BOTTLE RS AND ONE BOTTLE LRS)
     Route: 051
     Dates: start: 202010
  10. XIAFLEX [Suspect]
     Active Substance: COLLAGENASE CLOSTRIDIUM HISTOLYTICUM
     Dosage: UNK UNKNOWN, UNKNOWN (TWO BOTTLE LMRS)
     Route: 051
     Dates: start: 202109
  11. XIAFLEX [Suspect]
     Active Substance: COLLAGENASE CLOSTRIDIUM HISTOLYTICUM
     Dosage: UNK UNKNOWN, UNKNOWN (ONE BOTTLE RMRS)
     Route: 051
     Dates: start: 202112
  12. XIAFLEX [Suspect]
     Active Substance: COLLAGENASE CLOSTRIDIUM HISTOLYTICUM
     Dosage: UNK UNKNOWN, UNKNOWN (ONE BOTTLE LRS AND LRS)
     Route: 051
     Dates: start: 202304
  13. XIAFLEX [Suspect]
     Active Substance: COLLAGENASE CLOSTRIDIUM HISTOLYTICUM
     Dosage: UNK UNKNOWN, UNKNOWN (ONE BOTTLE RIGHT MIDDLE SMALL FINGER SPIRAL CORD)
     Route: 051
     Dates: start: 202309

REACTIONS (4)
  - Injection site haemorrhage [Recovered/Resolved]
  - Peripheral swelling [Recovered/Resolved]
  - Inappropriate schedule of product administration [Unknown]
  - Off label use [Unknown]
